FAERS Safety Report 8923424 (Version 2)
Quarter: 2013Q1

REPORT INFORMATION
  Report Type: Report from Study
  Country: JP (occurrence: JP)
  Receive Date: 20121124
  Receipt Date: 20130201
  Transmission Date: 20140127
  Serious: Yes (Hospitalization)
  Sender: FDA-Public Use
  Company Number: JP-009507513-2012SP024704

PATIENT
  Age: 47 Year
  Sex: Male
  Weight: 70 kg

DRUGS (36)
  1. PEGINTRON [Suspect]
     Indication: CHRONIC HEPATITIS C
     Dosage: 1.43 MICROGRAM PER KILOGRAM, QW
     Route: 058
     Dates: start: 20120131, end: 20120220
  2. PEGINTRON [Suspect]
     Dosage: 1.18 MICROGRAM PER KILOGRAM, QW
     Route: 058
     Dates: start: 20120221, end: 20120430
  3. PEGINTRON [Suspect]
     Dosage: 0.71 MICROGRAM PER KILOGRAM, QW
     Route: 058
     Dates: start: 20120501, end: 20120710
  4. REBETOL [Suspect]
     Indication: CHRONIC HEPATITIS C
     Dosage: 800 MG, QD
     Route: 048
     Dates: start: 20120131, end: 20120221
  5. REBETOL [Suspect]
     Dosage: 600 MG, QD
     Route: 048
     Dates: start: 20120222, end: 20120228
  6. REBETOL [Suspect]
     Dosage: 400 MG, QD
     Route: 048
     Dates: start: 20120229, end: 20120320
  7. REBETOL [Suspect]
     Dosage: 200 MG, QD
     Route: 048
     Dates: start: 20120321, end: 20120709
  8. TELAVIC [Suspect]
     Indication: CHRONIC HEPATITIS C
     Dosage: 2250 MG, QD
     Route: 048
     Dates: start: 20120131, end: 20120306
  9. TELAVIC [Suspect]
     Dosage: 1500 MG, QD
     Route: 048
     Dates: start: 20120307, end: 20120422
  10. DOMPERIDONE [Concomitant]
     Indication: PROPHYLAXIS
     Dosage: 30 MG, QD, FORMULATION: POR
     Route: 048
     Dates: start: 20120131, end: 20120416
  11. LENDORMIN [Concomitant]
     Indication: PROPHYLAXIS
     Dosage: 0.125 MG, PER DAY AS NEEDED
     Route: 048
     Dates: start: 20120131, end: 20120209
  12. LENDORMIN [Concomitant]
     Dosage: 0.25 MG, PER DAY AS NEEDED
     Route: 048
     Dates: start: 20120207, end: 20120326
  13. LENDORMIN [Concomitant]
     Dosage: 0.25 MG, PER DAY AS NEEDED
     Route: 048
     Dates: start: 20120210, end: 20120326
  14. LOXOPROFEN [Concomitant]
     Indication: PROPHYLAXIS
     Dosage: 60 MG, PER DAY AS NEEDED, FORMULATION: POR
     Route: 048
     Dates: start: 20120131, end: 20120710
  15. LOXOPROFEN [Concomitant]
     Dosage: 60 MG PER DAY, FORMULATION: POR
     Route: 048
     Dates: start: 20120515, end: 20120524
  16. ALLEGRA [Concomitant]
     Indication: ERYTHEMA
     Dosage: 120 MG, QD
     Route: 048
     Dates: start: 20120202, end: 20120214
  17. ANTEBATE [Concomitant]
     Indication: ERYTHEMA
     Dosage: UNK UNK, PRN
     Route: 065
     Dates: start: 20120202
  18. AMOBAN [Concomitant]
     Indication: PROPHYLAXIS
     Dosage: 7.5 MG, QD, AS NEEDED, FORMULATION: POR
     Route: 048
     Dates: start: 20120213, end: 20120416
  19. DEPAS [Concomitant]
     Dosage: 0.5 MG, PER DAY PRN
     Route: 048
     Dates: start: 20120221, end: 20120228
  20. ZYLORIC [Concomitant]
     Indication: BLOOD CREATININE INCREASED
     Dosage: 200 MG, QD
     Route: 048
     Dates: start: 20120228
  21. ZOLOFT [Concomitant]
     Dosage: 25 MG, QD
     Route: 048
     Dates: start: 20120306
  22. CERCINE [Concomitant]
     Dosage: 2 MG, QD, FORMULATION: POR
     Route: 048
     Dates: start: 20120313
  23. CERCINE [Concomitant]
     Dosage: 16 MG, QD, FORMULATION: POR
     Route: 048
     Dates: start: 20120501, end: 20120507
  24. CERCINE [Concomitant]
     Dosage: 8 MG, QD, FORMULATION: POR
     Route: 048
     Dates: start: 20120515, end: 20120521
  25. CERCINE [Concomitant]
     Dosage: 8 MG, QD, FORMULATION: POR
     Route: 048
     Dates: start: 20120522, end: 20120528
  26. CERCINE [Concomitant]
     Dosage: 4 MG, QD, FORMULATION: POR
     Route: 048
     Dates: start: 20120529, end: 20120611
  27. HORIZON [Concomitant]
     Dosage: 20 MG, QD
     Route: 048
     Dates: start: 20120413, end: 20120430
  28. HORIZON [Concomitant]
     Dosage: 20 MG, QD
     Route: 030
     Dates: start: 20120413, end: 20120423
  29. HORIZON [Concomitant]
     Dosage: 20 MG, QD
     Route: 030
     Dates: start: 20120424, end: 20120510
  30. HORIZON [Concomitant]
     Dosage: 10 MG, QD
     Route: 030
     Dates: start: 20120501, end: 20120501
  31. LANDSEN [Concomitant]
     Dosage: 20 MG, QD
     Route: 048
     Dates: start: 20120417
  32. LANDSEN [Concomitant]
     Dosage: 1 MG, QD
     Route: 048
     Dates: end: 20120514
  33. BI SIFROL [Concomitant]
     Dosage: 0.25 MG, QD
     Route: 048
     Dates: start: 20120417, end: 20120528
  34. BI SIFROL [Concomitant]
     Dosage: 0.125 MG, QD
     Route: 048
     Dates: start: 20120529, end: 20120611
  35. BI SIFROL [Concomitant]
     Dosage: 10MG/DAY, AS NEEDED
     Route: 048
     Dates: start: 20120410
  36. LAC-B [Concomitant]
     Dosage: 3 G, QD, FORMULATION:POR
     Route: 048

REACTIONS (1)
  - Feeling abnormal [Recovering/Resolving]
